FAERS Safety Report 4952197-2 (Version None)
Quarter: 2006Q1

REPORT INFORMATION
  Report Type: 
  Country: None (occurrence: None)
  Receive Date: 20060127
  Receipt Date: 20050601
  Transmission Date: 20060701
  Serious: Yes (Death)
  Sender: FDA-Public Use
  Company Number: 05-06-0957

PATIENT
  Sex: Female

DRUGS (2)
  1. CLOZAPINE [Suspect]
     Indication: ABNORMAL BEHAVIOUR
     Dosage: 25-200MG QD, ORAL
     Route: 048
     Dates: start: 20020101, end: 20050401
  2. CLOZAPINE [Suspect]
     Indication: AFFECTIVE DISORDER
     Dosage: 25-200MG QD, ORAL
     Route: 048
     Dates: start: 20020101, end: 20050401

REACTIONS (1)
  - PRE-EXISTING DISEASE [None]
